FAERS Safety Report 20884004 (Version 1)
Quarter: 2022Q2

REPORT INFORMATION
  Report Type: Spontaneous
  Country: PL (occurrence: PL)
  Receive Date: 20220527
  Receipt Date: 20220527
  Transmission Date: 20220720
  Serious: Yes (Other)
  Sender: FDA-Public Use
  Company Number: None

PATIENT
  Age: 49 Year
  Sex: Female
  Weight: 64 kg

DRUGS (4)
  1. LEUCOVORIN CALCIUM [Suspect]
     Active Substance: LEUCOVORIN CALCIUM
     Indication: Colon cancer
     Dosage: UNIT DOSE 384 MG
     Route: 042
     Dates: end: 20180717
  2. FLUOROURACIL [Suspect]
     Active Substance: FLUOROURACIL
     Indication: Colon cancer
     Dosage: UNIT DOSE 768 MG
     Route: 040
     Dates: end: 20180717
  3. FLUOROURACIL [Suspect]
     Active Substance: FLUOROURACIL
     Dosage: UNIT DOSE 1152 MG
     Route: 041
     Dates: end: 20180717
  4. IRINOTECAN [Suspect]
     Active Substance: IRINOTECAN
     Indication: Colon cancer
     Dosage: UNIT DOSE 345.6 MG
     Route: 042
     Dates: end: 20180717

REACTIONS (1)
  - Neutropenia [Unknown]

NARRATIVE: CASE EVENT DATE: 20180821
